FAERS Safety Report 4511649-X (Version None)
Quarter: 2004Q4

REPORT INFORMATION
  Report Type: 
  Country: None (occurrence: None)
  Receive Date: 20041129
  Receipt Date: 20041001
  Transmission Date: 20050328
  Serious: No
  Sender: FDA-Public Use
  Company Number: US-BRISTOL-MYERS SQUIBB COMPANY-12748364

PATIENT

DRUGS (1)
  1. ABILIFY [Suspect]
     Dosage: DOSE REDUCED TO 7.5 MG/DAY

REACTIONS (1)
  - OCULOGYRATION [None]
